FAERS Safety Report 22530313 (Version 1)
Quarter: 2023Q2

REPORT INFORMATION
  Report Type: Spontaneous
  Country: US (occurrence: None)
  Receive Date: 20230606
  Receipt Date: 20230606
  Transmission Date: 20230722
  Serious: Yes (Hospitalization, Other)
  Sender: FDA-Public Use
  Company Number: None

PATIENT
  Age: 35 Year
  Sex: Female
  Weight: 61.23 kg

DRUGS (1)
  1. MIRENA [Suspect]
     Active Substance: LEVONORGESTREL
     Dates: start: 20221212, end: 20230306

REACTIONS (6)
  - Vaginal haemorrhage [None]
  - Muscle spasms [None]
  - Impaired work ability [None]
  - Gait disturbance [None]
  - Pain [None]
  - Uterine pain [None]

NARRATIVE: CASE EVENT DATE: 20221222
